FAERS Safety Report 10357869 (Version 1)
Quarter: 2014Q3

REPORT INFORMATION
  Report Type: Spontaneous
  Country: US (occurrence: None)
  Receive Date: 20140730
  Receipt Date: 20140730
  Transmission Date: 20150326
  Serious: Yes (Other)
  Sender: FDA-Public Use
  Company Number: IPC201407-000377

PATIENT
  Age: 70 Year
  Sex: Female

DRUGS (13)
  1. AMLODIPINE [Concomitant]
     Active Substance: AMLODIPINE BESYLATE
  2. GABAPENTIN (GABAPENTIN) (GABAPENTIN) [Suspect]
     Active Substance: GABAPENTIN
     Indication: NEURALGIA
     Dates: start: 201108
  3. DOXAZOSIN [Concomitant]
     Active Substance: DOXAZOSIN\DOXAZOSIN MESYLATE
  4. FUROSEMIDE (FUROSEMDIE) (FUROSEMIDE) [Concomitant]
  5. METOPROLOL (METOPROLOL) (METOPROLOL) [Concomitant]
     Active Substance: METOPROLOL
  6. CLONIDINE (CLONIDINE) (CLONIDINE) [Suspect]
     Active Substance: CLONIDINE
  7. PRAVASTATIN (PRAVASTATIN) (PRAVASTATIN) [Concomitant]
  8. TRAMADOL (TRAMADOL) (TRAMADOL) [Suspect]
     Active Substance: TRAMADOL
  9. HYDRALZINE (HYDRALAZINE) (HYDRALAZINE) [Concomitant]
  10. NIACIN (NIACIN) (NIACIN) [Concomitant]
  11. BISACODYL (BISACODYL) (BISACODYL) [Concomitant]
  12. MEGESTROL (MEGESTROL) (MEGESTROL) [Concomitant]
  13. HYDROCODONE ACETAMINOPHEN [Concomitant]
     Active Substance: ACETAMINOPHEN\HYDROCODONE BITARTRATE

REACTIONS (3)
  - Chorea [None]
  - Drug interaction [None]
  - Tardive dyskinesia [None]
